FAERS Safety Report 10067559 (Version 3)
Quarter: 2014Q2

REPORT INFORMATION
  Report Type: Report from Study
  Country: US (occurrence: US)
  Receive Date: 20140409
  Receipt Date: 20140619
  Transmission Date: 20141212
  Serious: Yes (Hospitalization, Other)
  Sender: FDA-Public Use
  Company Number: US-ROCHE-1375480

PATIENT
  Age: 43 Year
  Sex: Female
  Weight: 53.07 kg

DRUGS (10)
  1. OBINUTUZUMAB [Suspect]
     Indication: DIFFUSE LARGE B-CELL LYMPHOMA
     Dosage: DATE OF LAST DOSE (VOLUME : 250 ML AND DOSE CONCENTRATION : 4 MG/ML) PRIOR TO AE ONSET : 12/MAR/2014
     Route: 042
     Dates: start: 20140108
  2. CYCLOPHOSPHAMIDE [Suspect]
     Indication: DIFFUSE LARGE B-CELL LYMPHOMA
     Dosage: DATE OF MOST RECENT DOSE (1185 MG) PRIOR TO AE ONSET : 12/MAR/2014
     Route: 042
     Dates: start: 20140108
  3. DOXORUBICIN [Suspect]
     Indication: DIFFUSE LARGE B-CELL LYMPHOMA
     Dosage: DATE OF MOST RECENT DOSE (79 MG) PRIOR TO AE ONSET : 12/MAR/2014
     Route: 042
     Dates: start: 20140108
  4. VINCRISTINE [Suspect]
     Indication: DIFFUSE LARGE B-CELL LYMPHOMA
     Dosage: DATE OF MOST RECENT DOSE (2 MG) PRIOR TO AE ONSET : 12/MAR/2014
     Route: 040
     Dates: start: 20140108
  5. PREDNISONE [Suspect]
     Indication: DIFFUSE LARGE B-CELL LYMPHOMA
     Dosage: DATE OF MOST RECENT DOSE (100 MG) PRIOR TO AE ONSET : 12/MAR/2014
     Route: 065
     Dates: start: 20140108
  6. VITAMIN B12 [Concomitant]
     Route: 065
     Dates: start: 201312
  7. ZOFRAN [Concomitant]
     Indication: NAUSEA
     Route: 065
     Dates: start: 20140108
  8. KYTRIL [Concomitant]
     Indication: NAUSEA
     Route: 065
     Dates: start: 20140109
  9. COMPAZINE [Concomitant]
     Indication: NAUSEA
     Route: 065
     Dates: start: 20140108
  10. IBUPROFEN [Concomitant]
     Indication: PAIN IN JAW
     Route: 065
     Dates: start: 20140113

REACTIONS (1)
  - Febrile neutropenia [Recovered/Resolved]
